FAERS Safety Report 10555542 (Version 2)
Quarter: 2014Q4

REPORT INFORMATION
  Report Type: Report from Study
  Country: US (occurrence: US)
  Receive Date: 20141030
  Receipt Date: 20141030
  Transmission Date: 20150529
  Serious: Yes (Other)
  Sender: FDA-Public Use
  Company Number: US-ABBVIE-14K-163-1295718-00

PATIENT
  Age: 76 Year
  Sex: Female
  Weight: 78.09 kg

DRUGS (2)
  1. HUMIRA [Suspect]
     Active Substance: ADALIMUMAB
     Indication: CROHN^S DISEASE
     Route: 065
     Dates: start: 201007, end: 201109
  2. METOPROLOL [Concomitant]
     Active Substance: METOPROLOL
     Indication: CARDIOMYOPATHY
     Dates: start: 201409

REACTIONS (3)
  - Large intestinal obstruction [Unknown]
  - Crohn^s disease [Not Recovered/Not Resolved]
  - Cardiomyopathy [Not Recovered/Not Resolved]

NARRATIVE: CASE EVENT DATE: 201409
